FAERS Safety Report 9296523 (Version 1)
Quarter: 2013Q2

REPORT INFORMATION
  Report Type: Spontaneous
  Country: US (occurrence: US)
  Receive Date: 20130517
  Receipt Date: 20130517
  Transmission Date: 20140414
  Serious: Yes (Other)
  Sender: FDA-Public Use
  Company Number: US-ASTRAZENECA-2013SE32349

PATIENT
  Sex: Female

DRUGS (18)
  1. METOPROLOL [Suspect]
     Route: 065
  2. ZESTRIL [Suspect]
     Route: 048
  3. AMITRIPTYLINE [Suspect]
     Route: 065
  4. CELEXA [Concomitant]
  5. STEROIDS [Concomitant]
  6. METHELTREXATE [Concomitant]
  7. PERCOCET [Concomitant]
  8. LANTUS [Concomitant]
  9. NOVALOG [Concomitant]
  10. VITAMIN D [Concomitant]
  11. PLAQUINNIL [Concomitant]
  12. PREDNISONE [Concomitant]
  13. LASIX [Concomitant]
  14. POTASSIUM [Concomitant]
  15. FLEXRIL [Concomitant]
  16. NOVALOG NPH [Concomitant]
     Indication: DIABETES MELLITUS
  17. INSULIN [Concomitant]
  18. DIABETES MEDICATION [Concomitant]
     Indication: DIABETES MELLITUS

REACTIONS (5)
  - Cerebrovascular accident [Unknown]
  - General physical health deterioration [Unknown]
  - Blood disorder [Unknown]
  - Weight increased [Unknown]
  - Arthritis [Unknown]
